FAERS Safety Report 4881832-2 (Version None)
Quarter: 2006Q1

REPORT INFORMATION
  Report Type: 
  Country: None (occurrence: None)
  Receive Date: 20060112
  Receipt Date: 20060112
  Transmission Date: 20060701
  Serious: Yes (Death)
  Sender: FDA-Public Use
  Company Number: None

PATIENT
  Age: 46 Year
  Sex: Male
  Weight: 63.9572 kg

DRUGS (1)
  1. OLANZAPINE [Suspect]
     Indication: SCHIZOPHRENIA
     Dosage: 20 MG Q MS ORAL
     Route: 048
     Dates: start: 20050912

REACTIONS (1)
  - DIABETIC KETOACIDOSIS [None]
